FAERS Safety Report 9492430 (Version 3)
Quarter: 2013Q3

REPORT INFORMATION
  Report Type: Report from Study
  Country: NL (occurrence: NL)
  Receive Date: 20130830
  Receipt Date: 20130925
  Transmission Date: 20140515
  Serious: Yes (Hospitalization)
  Sender: FDA-Public Use
  Company Number: NL-EISAI INC-E2007-00736-CLI-NL

PATIENT
  Age: 49 Year
  Sex: Male
  Weight: 72 kg

DRUGS (5)
  1. E2007 (PERAMPANEL) [Suspect]
     Indication: EPILEPSY
     Dosage: TITRATION PHASE
     Dates: start: 20071218, end: 20080303
  2. E2007 (PERAMPANEL) [Suspect]
     Dosage: OPEN LABEL MAINTENANCE PHASE
     Route: 048
     Dates: start: 20080304, end: 20121024
  3. LAMOTRIGINE [Concomitant]
     Indication: EPILEPSY
     Route: 048
     Dates: start: 1996
  4. KEPPRA [Concomitant]
     Indication: EPILEPSY
     Route: 048
     Dates: start: 2005
  5. TEGRETAL [Concomitant]
     Indication: EPILEPSY
     Dosage: 600-400 MG
     Route: 048
     Dates: start: 1980

REACTIONS (1)
  - Grand mal convulsion [Recovered/Resolved]
